FAERS Safety Report 24171185 (Version 1)
Quarter: 2024Q3

REPORT INFORMATION
  Report Type: Report from Study
  Country: US (occurrence: US)
  Receive Date: 20240805
  Receipt Date: 20240805
  Transmission Date: 20241016
  Serious: No
  Sender: RANBAXY
  Company Number: US-SUN PHARMACEUTICAL INDUSTRIES LTD-2023R1-389656

PATIENT
  Sex: Male

DRUGS (1)
  1. SONIDEGIB [Suspect]
     Active Substance: SONIDEGIB
     Indication: Product used for unknown indication
     Dosage: 1 CAPSULE , DAILY
     Route: 048
     Dates: start: 20230523

REACTIONS (3)
  - Treatment delayed [Unknown]
  - Therapy cessation [Unknown]
  - Neoplasm skin [Recovering/Resolving]
